FAERS Safety Report 7042095-5 (Version None)
Quarter: 2010Q4

REPORT INFORMATION
  Report Type: 
  Country: None (occurrence: None)
  Receive Date: 20101013
  Receipt Date: 20100712
  Transmission Date: 20110411
  Serious: No
  Sender: FDA-Public Use
  Company Number: US-ASTRAZENECA-2010SE32445

PATIENT
  Sex: Female

DRUGS (1)
  1. SYMBICORT [Suspect]
     Dosage: 160/4.5MCG 2 PUFFS  BID
     Route: 055
     Dates: start: 20080101

REACTIONS (4)
  - GLOSSITIS [None]
  - GLOSSODYNIA [None]
  - OROPHARYNGEAL PAIN [None]
  - SENSATION OF FOREIGN BODY [None]
